FAERS Safety Report 4624853-7 (Version None)
Quarter: 2005Q2

REPORT INFORMATION
  Report Type: 
  Country: None (occurrence: None)
  Receive Date: 20050325
  Receipt Date: 20050106
  Transmission Date: 20051028
  Serious: No
  Sender: FDA-Public Use
  Company Number: USA050187603

PATIENT
  Age: 59 Year
  Sex: Female
  Weight: 66 kg

DRUGS (4)
  1. FORTEO [Suspect]
     Indication: OSTEOPOROSIS
     Dates: start: 20040101
  2. EFFEXOR [Concomitant]
  3. LIPITOR [Concomitant]
  4. .. [Concomitant]

REACTIONS (4)
  - ERYTHEMA [None]
  - INJECTION SITE ERYTHEMA [None]
  - PRURITUS [None]
  - RASH [None]
